FAERS Safety Report 18067824 (Version 1)
Quarter: 2020Q3

REPORT INFORMATION
  Report Type: Spontaneous
  Country: US (occurrence: US)
  Receive Date: 20200724
  Receipt Date: 20200724
  Transmission Date: 20201103
  Serious: Yes (Other)
  Sender: FDA-Public Use
  Company Number: US-PFIZER INC-2020279037

PATIENT
  Age: 76 Year
  Sex: Male

DRUGS (3)
  1. NORMAL SALINE [Concomitant]
     Active Substance: SODIUM CHLORIDE
     Indication: VEHICLE SOLUTION USE
     Dosage: 50 ML
  2. MITOXANTRONE HCL [Suspect]
     Active Substance: MITOXANTRONE HYDROCHLORIDE
     Indication: HORMONE-REFRACTORY PROSTATE CANCER
     Dosage: 12 MG/M2, (ADMINISTERED OVER 30MIN AT A DOSE OF 12MG/M2 (TOTAL DOSE 23.2MG) DILUTED IN 50ML OF NS)
     Route: 042
  3. LEUPROLIDE ACETATE. [Concomitant]
     Active Substance: LEUPROLIDE ACETATE
     Indication: HORMONE-REFRACTORY PROSTATE CANCER
     Dosage: UNK

REACTIONS (7)
  - Infusion site necrosis [Unknown]
  - Infusion site extravasation [Recovered/Resolved]
  - Infusion site eschar [Unknown]
  - Infusion site discolouration [Not Recovered/Not Resolved]
  - Infusion site oedema [Recovering/Resolving]
  - Infusion site pain [Recovered/Resolved]
  - Infusion site vesicles [Unknown]
